FAERS Safety Report 23898761 (Version 1)
Quarter: 2024Q2

REPORT INFORMATION
  Report Type: Spontaneous
  Country: CA (occurrence: CA)
  Receive Date: 20240525
  Receipt Date: 20240525
  Transmission Date: 20240716
  Serious: Yes (Death, Life-Threatening, Hospitalization, Disabling, Other)
  Sender: FDA-Public Use
  Company Number: CA-002147023-NVSC2024CA101297

PATIENT
  Age: 44 Year
  Sex: Female

DRUGS (498)
  1. DICLOFENAC [Suspect]
     Active Substance: DICLOFENAC
     Indication: Product used for unknown indication
     Route: 047
  2. DICLOFENAC [Suspect]
     Active Substance: DICLOFENAC
     Dosage: UNK;
     Route: 065
  3. DICLOFENAC [Suspect]
     Active Substance: DICLOFENAC
     Dosage: UNK;
     Route: 047
  4. COSENTYX [Suspect]
     Active Substance: SECUKINUMAB
     Indication: Rheumatoid arthritis
     Dosage: UNK;
     Route: 065
  5. COSENTYX [Suspect]
     Active Substance: SECUKINUMAB
     Indication: Psoriatic arthropathy
  6. ALENDRONATE SODIUM [Suspect]
     Active Substance: ALENDRONATE SODIUM
     Indication: Rheumatoid arthritis
     Dosage: UNK
     Route: 048
  7. ALENDRONATE SODIUM [Suspect]
     Active Substance: ALENDRONATE SODIUM
     Dosage: UNK
     Route: 065
  8. ALENDRONIC ACID [Suspect]
     Active Substance: ALENDRONIC ACID
     Indication: Rheumatoid arthritis
     Dosage: UNK
     Route: 048
  9. ALENDRONIC ACID [Suspect]
     Active Substance: ALENDRONIC ACID
     Dosage: UNK
     Route: 065
  10. ALENDRONIC ACID [Suspect]
     Active Substance: ALENDRONIC ACID
     Dosage: UNK
     Route: 016
  11. ALENDRONIC ACID [Suspect]
     Active Substance: ALENDRONIC ACID
     Route: 065
  12. ALENDRONIC ACID [Suspect]
     Active Substance: ALENDRONIC ACID
     Dosage: UNK
     Route: 048
  13. ALENDRONIC ACID [Suspect]
     Active Substance: ALENDRONIC ACID
     Dosage: UNK
     Route: 048
  14. ALENDRONIC ACID [Suspect]
     Active Substance: ALENDRONIC ACID
     Dosage: UNK
     Route: 065
  15. DICLOFENAC SODIUM [Suspect]
     Active Substance: DICLOFENAC\DICLOFENAC SODIUM
     Indication: Product used for unknown indication
     Route: 065
  16. DICLOFENAC SODIUM [Suspect]
     Active Substance: DICLOFENAC\DICLOFENAC SODIUM
     Dosage: UNK
     Route: 047
  17. DICLOFENAC SODIUM [Suspect]
     Active Substance: DICLOFENAC\DICLOFENAC SODIUM
     Dosage: UNK
     Route: 065
  18. DICLOFENAC SODIUM [Suspect]
     Active Substance: DICLOFENAC\DICLOFENAC SODIUM
     Dosage: UNK
     Route: 048
  19. PREDNISONE [Suspect]
     Active Substance: PREDNISONE
     Indication: Systemic lupus erythematosus
     Route: 065
  20. PREDNISONE [Suspect]
     Active Substance: PREDNISONE
     Indication: Synovitis
     Route: 048
  21. PREDNISONE [Suspect]
     Active Substance: PREDNISONE
     Indication: Rheumatoid arthritis
     Dosage: UNK
     Route: 065
  22. PREDNISONE [Suspect]
     Active Substance: PREDNISONE
     Indication: Psoriatic arthropathy
     Route: 048
  23. PREDNISONE [Suspect]
     Active Substance: PREDNISONE
     Indication: Pemphigus
     Route: 048
  24. PREDNISONE [Suspect]
     Active Substance: PREDNISONE
     Indication: Inflammation
     Dosage: UNK
     Route: 048
  25. PREDNISONE [Suspect]
     Active Substance: PREDNISONE
     Indication: Bursitis
     Route: 065
  26. APREMILAST [Suspect]
     Active Substance: APREMILAST
     Indication: Product used for unknown indication
     Route: 065
  27. APREMILAST [Suspect]
     Active Substance: APREMILAST
     Route: 048
  28. APREMILAST [Suspect]
     Active Substance: APREMILAST
     Route: 065
  29. APREMILAST [Suspect]
     Active Substance: APREMILAST
     Route: 065
  30. APREMILAST [Suspect]
     Active Substance: APREMILAST
     Route: 065
  31. APREMILAST [Suspect]
     Active Substance: APREMILAST
     Route: 048
  32. APREMILAST [Suspect]
     Active Substance: APREMILAST
     Dosage: UNK
     Route: 042
  33. APREMILAST [Suspect]
     Active Substance: APREMILAST
     Dosage: UNK
     Route: 042
  34. ASACOL [Suspect]
     Active Substance: MESALAMINE
     Indication: Product used for unknown indication
     Dosage: UNK; ENTERIC-COATED TABLET
  35. DIETARY SUPPLEMENT [Suspect]
     Active Substance: DIETARY SUPPLEMENT
     Indication: Product used for unknown indication
     Dosage: UNK
     Route: 016
  36. DIETARY SUPPLEMENT [Suspect]
     Active Substance: DIETARY SUPPLEMENT
     Dosage: UNK
     Route: 065
  37. DIETARY SUPPLEMENT [Suspect]
     Active Substance: DIETARY SUPPLEMENT
     Route: 065
  38. DIETARY SUPPLEMENT [Suspect]
     Active Substance: DIETARY SUPPLEMENT
     Dosage: UNK
     Route: 065
  39. BORAGE OIL [Suspect]
     Active Substance: BORAGE OIL
     Indication: Product used for unknown indication
     Dosage: UNK
     Route: 065
  40. TUMS [Suspect]
     Active Substance: CALCIUM CARBONATE
     Indication: Product used for unknown indication
     Dosage: UNKNOWN
     Route: 065
  41. TUMS [Suspect]
     Active Substance: CALCIUM CARBONATE
     Dosage: UNKNOWN
     Route: 065
  42. TUMS [Suspect]
     Active Substance: CALCIUM CARBONATE
     Dosage: UNKNOWN
     Route: 065
  43. CALCIUM GLUBIONATE [Suspect]
     Active Substance: CALCIUM GLUBIONATE
     Indication: Product used for unknown indication
     Dosage: UNK
     Route: 016
  44. CALCIUM GLUBIONATE [Suspect]
     Active Substance: CALCIUM GLUBIONATE
     Dosage: UNK
     Route: 065
  45. CELEBREX [Suspect]
     Active Substance: CELECOXIB
     Indication: Product used for unknown indication
     Route: 048
  46. CELEBREX [Suspect]
     Active Substance: CELECOXIB
     Route: 048
  47. CELECOXIB [Suspect]
     Active Substance: CELECOXIB
     Indication: Product used for unknown indication
     Route: 065
  48. CELECOXIB [Suspect]
     Active Substance: CELECOXIB
     Route: 065
  49. CELECOXIB [Suspect]
     Active Substance: CELECOXIB
     Dosage: UNK
     Route: 065
  50. CERTOLIZUMAB PEGOL [Suspect]
     Active Substance: CERTOLIZUMAB PEGOL
     Indication: Product used for unknown indication
     Dosage: UNK
     Route: 065
  51. CONTAC [Suspect]
     Active Substance: ACETAMINOPHEN\PHENYLEPHRINE HYDROCHLORIDE
     Indication: Rheumatoid arthritis
     Route: 048
  52. CONTAC [Suspect]
     Active Substance: ACETAMINOPHEN\PHENYLEPHRINE HYDROCHLORIDE
     Route: 048
  53. CONTAC [Suspect]
     Active Substance: ACETAMINOPHEN\PHENYLEPHRINE HYDROCHLORIDE
     Route: 065
  54. CONTAC [Suspect]
     Active Substance: ACETAMINOPHEN\PHENYLEPHRINE HYDROCHLORIDE
     Route: 048
  55. CONTAC [Suspect]
     Active Substance: ACETAMINOPHEN\PHENYLEPHRINE HYDROCHLORIDE
     Dosage: UNK
     Route: 065
  56. CONTAC [Suspect]
     Active Substance: ACETAMINOPHEN\PHENYLEPHRINE HYDROCHLORIDE
     Route: 065
  57. CONTAC [Suspect]
     Active Substance: ACETAMINOPHEN\PHENYLEPHRINE HYDROCHLORIDE
     Route: 065
  58. CONTAC [Suspect]
     Active Substance: ACETAMINOPHEN\PHENYLEPHRINE HYDROCHLORIDE
     Route: 065
  59. CONTAC [Suspect]
     Active Substance: ACETAMINOPHEN\PHENYLEPHRINE HYDROCHLORIDE
     Route: 065
  60. CONTAC [Suspect]
     Active Substance: ACETAMINOPHEN\PHENYLEPHRINE HYDROCHLORIDE
     Route: 048
  61. CONTAC [Suspect]
     Active Substance: ACETAMINOPHEN\PHENYLEPHRINE HYDROCHLORIDE
     Route: 065
  62. CONTAC [Suspect]
     Active Substance: ACETAMINOPHEN\PHENYLEPHRINE HYDROCHLORIDE
     Route: 048
  63. CONTAC [Suspect]
     Active Substance: ACETAMINOPHEN\PHENYLEPHRINE HYDROCHLORIDE
     Dosage: UNK
     Route: 065
  64. CONTAC [Suspect]
     Active Substance: ACETAMINOPHEN\PHENYLEPHRINE HYDROCHLORIDE
     Route: 065
  65. CONTAC [Suspect]
     Active Substance: ACETAMINOPHEN\PHENYLEPHRINE HYDROCHLORIDE
     Dosage: UNK
     Route: 065
  66. CONTAC [Suspect]
     Active Substance: ACETAMINOPHEN\PHENYLEPHRINE HYDROCHLORIDE
     Route: 048
  67. CONTAC [Suspect]
     Active Substance: ACETAMINOPHEN\PHENYLEPHRINE HYDROCHLORIDE
     Route: 065
  68. CONTAC [Suspect]
     Active Substance: ACETAMINOPHEN\PHENYLEPHRINE HYDROCHLORIDE
     Route: 048
  69. CONTAC [Suspect]
     Active Substance: ACETAMINOPHEN\PHENYLEPHRINE HYDROCHLORIDE
     Route: 065
  70. CONTAC [Suspect]
     Active Substance: ACETAMINOPHEN\PHENYLEPHRINE HYDROCHLORIDE
     Dosage: UNK
     Route: 065
  71. CONTAC [Suspect]
     Active Substance: ACETAMINOPHEN\PHENYLEPHRINE HYDROCHLORIDE
     Dosage: UNK
     Route: 065
  72. CONTAC [Suspect]
     Active Substance: ACETAMINOPHEN\PHENYLEPHRINE HYDROCHLORIDE
     Dosage: UNK
     Route: 065
  73. CONTAC [Suspect]
     Active Substance: ACETAMINOPHEN\PHENYLEPHRINE HYDROCHLORIDE
     Dosage: UNK
     Route: 065
  74. CONTAC [Suspect]
     Active Substance: ACETAMINOPHEN\PHENYLEPHRINE HYDROCHLORIDE
     Route: 048
  75. CONTAC [Suspect]
     Active Substance: ACETAMINOPHEN\PHENYLEPHRINE HYDROCHLORIDE
     Route: 065
  76. CONTAC [Suspect]
     Active Substance: ACETAMINOPHEN\PHENYLEPHRINE HYDROCHLORIDE
     Dosage: UNK
     Route: 065
  77. CONTAC [Suspect]
     Active Substance: ACETAMINOPHEN\PHENYLEPHRINE HYDROCHLORIDE
     Route: 048
  78. CONTAC [Suspect]
     Active Substance: ACETAMINOPHEN\PHENYLEPHRINE HYDROCHLORIDE
     Route: 065
  79. CONTAC [Suspect]
     Active Substance: ACETAMINOPHEN\PHENYLEPHRINE HYDROCHLORIDE
     Route: 048
  80. CONTAC [Suspect]
     Active Substance: ACETAMINOPHEN\PHENYLEPHRINE HYDROCHLORIDE
     Route: 065
  81. CONTAC [Suspect]
     Active Substance: ACETAMINOPHEN\PHENYLEPHRINE HYDROCHLORIDE
     Route: 065
  82. CONTAC [Suspect]
     Active Substance: ACETAMINOPHEN\PHENYLEPHRINE HYDROCHLORIDE
     Route: 065
  83. CONTAC [Suspect]
     Active Substance: ACETAMINOPHEN\PHENYLEPHRINE HYDROCHLORIDE
     Route: 065
  84. CONTAC [Suspect]
     Active Substance: ACETAMINOPHEN\PHENYLEPHRINE HYDROCHLORIDE
     Route: 065
  85. CONTAC [Suspect]
     Active Substance: ACETAMINOPHEN\PHENYLEPHRINE HYDROCHLORIDE
     Route: 065
  86. CONTAC [Suspect]
     Active Substance: ACETAMINOPHEN\PHENYLEPHRINE HYDROCHLORIDE
     Dosage: UNK;
     Route: 065
  87. CONTAC [Suspect]
     Active Substance: ACETAMINOPHEN\PHENYLEPHRINE HYDROCHLORIDE
     Route: 065
  88. CHLORAPREP [Suspect]
     Active Substance: CHLORHEXIDINE GLUCONATE\ISOPROPYL ALCOHOL
     Indication: Product used for unknown indication
     Dosage: UNK
     Route: 061
  89. CHLORAPREP [Suspect]
     Active Substance: CHLORHEXIDINE GLUCONATE\ISOPROPYL ALCOHOL
     Dosage: UNK
     Route: 061
  90. CHLORAPREP [Suspect]
     Active Substance: CHLORHEXIDINE GLUCONATE\ISOPROPYL ALCOHOL
     Dosage: UNK
     Route: 048
  91. PANADOL [Suspect]
     Active Substance: ACETAMINOPHEN
     Indication: Rheumatoid arthritis
     Route: 065
  92. PANADOL [Suspect]
     Active Substance: ACETAMINOPHEN
     Indication: Pain
     Dosage: UNK
     Route: 065
  93. VOLTAREN [Suspect]
     Active Substance: DICLOFENAC SODIUM
     Indication: Product used for unknown indication
     Dosage: UNK
     Route: 050
  94. VOLTAREN [Suspect]
     Active Substance: DICLOFENAC SODIUM
     Dosage: UNK
     Route: 065
  95. VOLTAREN [Suspect]
     Active Substance: DICLOFENAC SODIUM
     Dosage: UNK
     Route: 048
  96. DICLOFENAC SODIUM [Suspect]
     Active Substance: DICLOFENAC\DICLOFENAC SODIUM
     Indication: Product used for unknown indication
     Dosage: UNK
  97. DICLOFENAC SODIUM [Suspect]
     Active Substance: DICLOFENAC\DICLOFENAC SODIUM
     Dosage: UNK
     Route: 058
  98. DICLOFENAC SODIUM [Suspect]
     Active Substance: DICLOFENAC\DICLOFENAC SODIUM
     Dosage: UNK
     Route: 048
  99. DICLOFENAC SODIUM [Suspect]
     Active Substance: DICLOFENAC\DICLOFENAC SODIUM
     Route: 065
  100. DICLOFENAC SODIUM [Suspect]
     Active Substance: DICLOFENAC\DICLOFENAC SODIUM
     Dosage: UNK
     Route: 050
  101. DICLOFENAC SODIUM [Suspect]
     Active Substance: DICLOFENAC\DICLOFENAC SODIUM
     Route: 065
  102. DICLOFENAC SODIUM [Suspect]
     Active Substance: DICLOFENAC\DICLOFENAC SODIUM
     Dosage: UNK
     Route: 065
  103. DICLOFENAC SODIUM [Suspect]
     Active Substance: DICLOFENAC\DICLOFENAC SODIUM
     Dosage: UNK
     Route: 058
  104. DICLOFENAC SODIUM [Suspect]
     Active Substance: DICLOFENAC\DICLOFENAC SODIUM
     Dosage: UNK
     Route: 047
  105. DICLOFENAC SODIUM [Suspect]
     Active Substance: DICLOFENAC\DICLOFENAC SODIUM
     Dosage: UNK
     Route: 065
  106. DICLOFENAC SODIUM [Suspect]
     Active Substance: DICLOFENAC\DICLOFENAC SODIUM
     Route: 047
  107. ACETAMINOPHEN AND CODEINE [Suspect]
     Active Substance: ACETAMINOPHEN\CODEINE PHOSPHATE
     Indication: Product used for unknown indication
     Dosage: UNK
     Route: 065
  108. ACTEMRA [Suspect]
     Active Substance: TOCILIZUMAB
     Indication: Rheumatoid arthritis
     Dosage: UNK
     Route: 058
  109. ACTEMRA [Suspect]
     Active Substance: TOCILIZUMAB
     Route: 042
  110. ACTEMRA [Suspect]
     Active Substance: TOCILIZUMAB
     Route: 042
  111. ACTEMRA [Suspect]
     Active Substance: TOCILIZUMAB
     Route: 042
  112. ACTEMRA [Suspect]
     Active Substance: TOCILIZUMAB
     Route: 065
  113. ACTEMRA [Suspect]
     Active Substance: TOCILIZUMAB
     Route: 058
  114. ACTEMRA [Suspect]
     Active Substance: TOCILIZUMAB
     Dosage: UNK
     Route: 016
  115. ACTEMRA [Suspect]
     Active Substance: TOCILIZUMAB
     Route: 042
  116. ACTEMRA [Suspect]
     Active Substance: TOCILIZUMAB
     Route: 048
  117. ACTEMRA [Suspect]
     Active Substance: TOCILIZUMAB
     Route: 042
  118. ACTEMRA [Suspect]
     Active Substance: TOCILIZUMAB
     Dosage: UNK
     Route: 065
  119. ACTEMRA [Suspect]
     Active Substance: TOCILIZUMAB
     Route: 042
  120. ACTEMRA [Suspect]
     Active Substance: TOCILIZUMAB
     Route: 042
  121. ACTEMRA [Suspect]
     Active Substance: TOCILIZUMAB
     Route: 042
  122. ACTEMRA [Suspect]
     Active Substance: TOCILIZUMAB
     Route: 042
  123. ACTEMRA [Suspect]
     Active Substance: TOCILIZUMAB
     Route: 042
  124. ACTEMRA [Suspect]
     Active Substance: TOCILIZUMAB
     Dosage: UNK
     Route: 065
  125. ACTEMRA [Suspect]
     Active Substance: TOCILIZUMAB
     Route: 058
  126. ACTEMRA [Suspect]
     Active Substance: TOCILIZUMAB
     Dosage: UNK
     Route: 042
  127. ACTEMRA [Suspect]
     Active Substance: TOCILIZUMAB
     Route: 042
  128. ACTEMRA [Suspect]
     Active Substance: TOCILIZUMAB
     Dosage: UNK
     Route: 042
  129. ACTEMRA [Suspect]
     Active Substance: TOCILIZUMAB
     Dosage: UNK
     Route: 065
  130. ACTEMRA [Suspect]
     Active Substance: TOCILIZUMAB
     Dosage: UNK
     Route: 065
  131. ACTEMRA [Suspect]
     Active Substance: TOCILIZUMAB
     Dosage: UNK
     Route: 042
  132. ACTEMRA [Suspect]
     Active Substance: TOCILIZUMAB
     Route: 042
  133. ACTEMRA [Suspect]
     Active Substance: TOCILIZUMAB
     Route: 042
  134. ACTEMRA [Suspect]
     Active Substance: TOCILIZUMAB
     Route: 042
  135. ACTEMRA [Suspect]
     Active Substance: TOCILIZUMAB
     Route: 048
  136. ACTEMRA [Suspect]
     Active Substance: TOCILIZUMAB
     Dosage: UNK
     Route: 048
  137. ACTEMRA [Suspect]
     Active Substance: TOCILIZUMAB
     Route: 058
  138. ACTEMRA [Suspect]
     Active Substance: TOCILIZUMAB
     Dosage: UNK
     Route: 061
  139. ACTEMRA [Suspect]
     Active Substance: TOCILIZUMAB
     Route: 042
  140. ADALIMUMAB [Suspect]
     Active Substance: ADALIMUMAB\ISOPROPYL ALCOHOL
     Indication: Rheumatoid arthritis
     Route: 058
  141. ADALIMUMAB [Suspect]
     Active Substance: ADALIMUMAB\ISOPROPYL ALCOHOL
     Indication: Psoriatic arthropathy
     Route: 042
  142. ADALIMUMAB [Suspect]
     Active Substance: ADALIMUMAB\ISOPROPYL ALCOHOL
     Dosage: UNK
     Route: 058
  143. ADALIMUMAB [Suspect]
     Active Substance: ADALIMUMAB\ISOPROPYL ALCOHOL
     Dosage: UNK
     Route: 058
  144. ADALIMUMAB [Suspect]
     Active Substance: ADALIMUMAB\ISOPROPYL ALCOHOL
     Dosage: UNK
     Route: 048
  145. CHLORHEXIDINE GLUCONATE [Suspect]
     Active Substance: CHLORHEXIDINE GLUCONATE
     Indication: Product used for unknown indication
     Dosage: UNK
     Route: 065
  146. CHLORHEXIDINE GLUCONATE [Suspect]
     Active Substance: CHLORHEXIDINE GLUCONATE
     Dosage: UNK
     Route: 061
  147. CHLORHEXIDINE GLUCONATE [Suspect]
     Active Substance: CHLORHEXIDINE GLUCONATE
     Dosage: UNK
     Route: 002
  148. CHLORHEXIDINE GLUCONATE [Suspect]
     Active Substance: CHLORHEXIDINE GLUCONATE
     Dosage: UNK
     Route: 048
  149. CHLORHEXIDINE GLUCONATE [Suspect]
     Active Substance: CHLORHEXIDINE GLUCONATE
     Dosage: UNK
     Route: 065
  150. CHLORHEXIDINE GLUCONATE [Suspect]
     Active Substance: CHLORHEXIDINE GLUCONATE
     Dosage: UNK
     Route: 065
  151. CHLORHEXIDINE GLUCONATE [Suspect]
     Active Substance: CHLORHEXIDINE GLUCONATE
     Dosage: UNK
     Route: 065
  152. CHLORHEXIDINE GLUCONATE [Suspect]
     Active Substance: CHLORHEXIDINE GLUCONATE
     Dosage: UNK
     Route: 002
  153. CHLORHEXIDINE GLUCONATE [Suspect]
     Active Substance: CHLORHEXIDINE GLUCONATE
     Dosage: UNK
     Route: 061
  154. CALTRATE [Suspect]
     Active Substance: CALCIUM CARBONATE
     Indication: Product used for unknown indication
     Dosage: UNK
     Route: 016
  155. CIMZIA [Suspect]
     Active Substance: CERTOLIZUMAB PEGOL
     Indication: Rheumatoid arthritis
     Dosage: UNK
     Route: 058
  156. CIMZIA [Suspect]
     Active Substance: CERTOLIZUMAB PEGOL
     Indication: Psoriatic arthropathy
     Route: 058
  157. CIMZIA [Suspect]
     Active Substance: CERTOLIZUMAB PEGOL
     Indication: Psoriasis
     Route: 058
  158. CIMZIA [Suspect]
     Active Substance: CERTOLIZUMAB PEGOL
     Dosage: UNK
     Route: 058
  159. CIMZIA [Suspect]
     Active Substance: CERTOLIZUMAB PEGOL
     Dosage: UNK
     Route: 058
  160. CIMZIA [Suspect]
     Active Substance: CERTOLIZUMAB PEGOL
     Dosage: UNK
     Route: 042
  161. CIMZIA [Suspect]
     Active Substance: CERTOLIZUMAB PEGOL
     Route: 058
  162. CIMZIA [Suspect]
     Active Substance: CERTOLIZUMAB PEGOL
     Dosage: UNK
     Route: 065
  163. CIMZIA [Suspect]
     Active Substance: CERTOLIZUMAB PEGOL
     Route: 058
  164. CIMZIA [Suspect]
     Active Substance: CERTOLIZUMAB PEGOL
     Dosage: UNK
     Route: 065
  165. CIMZIA [Suspect]
     Active Substance: CERTOLIZUMAB PEGOL
     Dosage: UNK
     Route: 005
  166. CIMZIA [Suspect]
     Active Substance: CERTOLIZUMAB PEGOL
     Route: 058
  167. CIMZIA [Suspect]
     Active Substance: CERTOLIZUMAB PEGOL
     Route: 058
  168. CIMZIA [Suspect]
     Active Substance: CERTOLIZUMAB PEGOL
     Route: 065
  169. CORTISONE ACETATE [Suspect]
     Active Substance: CORTISONE ACETATE
     Indication: Rheumatoid arthritis
     Route: 061
  170. CORTISONE ACETATE [Suspect]
     Active Substance: CORTISONE ACETATE
     Route: 061
  171. CORTISONE ACETATE [Suspect]
     Active Substance: CORTISONE ACETATE
     Dosage: UNK
     Route: 048
  172. CORTISONE ACETATE [Suspect]
     Active Substance: CORTISONE ACETATE
     Dosage: UNK
     Route: 048
  173. CORTISONE ACETATE [Suspect]
     Active Substance: CORTISONE ACETATE
     Route: 065
  174. CORTISONE ACETATE [Suspect]
     Active Substance: CORTISONE ACETATE
     Dosage: UNK
     Route: 050
  175. CORTISONE ACETATE [Suspect]
     Active Substance: CORTISONE ACETATE
     Route: 065
  176. CORTISONE ACETATE [Suspect]
     Active Substance: CORTISONE ACETATE
     Route: 048
  177. DESOXIMETASONE [Suspect]
     Active Substance: DESOXIMETASONE
     Indication: Rheumatoid arthritis
     Dosage: UNK
     Route: 058
  178. DESOXIMETASONE [Suspect]
     Active Substance: DESOXIMETASONE
     Dosage: UNK
     Route: 003
  179. DESOXIMETASONE [Suspect]
     Active Substance: DESOXIMETASONE
     Route: 061
  180. DESOXIMETASONE [Suspect]
     Active Substance: DESOXIMETASONE
     Dosage: UNK
     Route: 048
  181. DESOXIMETASONE [Suspect]
     Active Substance: DESOXIMETASONE
     Route: 061
  182. DESOXIMETASONE [Suspect]
     Active Substance: DESOXIMETASONE
     Route: 065
  183. DESOXIMETASONE [Suspect]
     Active Substance: DESOXIMETASONE
     Dosage: UNK
     Route: 042
  184. DESOXIMETASONE [Suspect]
     Active Substance: DESOXIMETASONE
     Dosage: UNK
     Route: 065
  185. DESOXIMETASONE [Suspect]
     Active Substance: DESOXIMETASONE
     Route: 048
  186. DESOXIMETASONE [Suspect]
     Active Substance: DESOXIMETASONE
     Route: 065
  187. DESOXIMETASONE [Suspect]
     Active Substance: DESOXIMETASONE
     Dosage: UNK
     Route: 058
  188. DESOXIMETASONE [Suspect]
     Active Substance: DESOXIMETASONE
     Dosage: UNK
     Route: 061
  189. DESOXIMETASONE [Suspect]
     Active Substance: DESOXIMETASONE
     Dosage: UNK
     Route: 048
  190. DESOXIMETASONE [Suspect]
     Active Substance: DESOXIMETASONE
     Dosage: UNK
     Route: 058
  191. DESOXIMETASONE [Suspect]
     Active Substance: DESOXIMETASONE
     Dosage: UNK
     Route: 048
  192. DESOXIMETASONE [Suspect]
     Active Substance: DESOXIMETASONE
     Route: 065
  193. DESOXIMETASONE [Suspect]
     Active Substance: DESOXIMETASONE
     Dosage: UNK
     Route: 050
  194. DICLOFENAC DIETHYLAMINE [Suspect]
     Active Substance: DICLOFENAC DIETHYLAMINE
     Indication: Product used for unknown indication
     Dosage: UNK
     Route: 065
  195. DILTIAZEM [Suspect]
     Active Substance: DILTIAZEM
     Indication: Product used for unknown indication
     Route: 065
  196. DILTIAZEM HYDROCHLORIDE [Suspect]
     Active Substance: DILTIAZEM HYDROCHLORIDE
     Indication: Product used for unknown indication
     Dosage: UNK
     Route: 042
  197. DILTIAZEM HYDROCHLORIDE [Suspect]
     Active Substance: DILTIAZEM HYDROCHLORIDE
     Dosage: UNK
     Route: 065
  198. ENBREL [Suspect]
     Active Substance: BENZYL ALCOHOL\ETANERCEPT
     Indication: Rheumatoid arthritis
     Dosage: UNK
     Route: 065
  199. ENBREL [Suspect]
     Active Substance: BENZYL ALCOHOL\ETANERCEPT
     Indication: Psoriatic arthropathy
     Route: 058
  200. ENBREL [Suspect]
     Active Substance: BENZYL ALCOHOL\ETANERCEPT
     Route: 058
  201. ENBREL [Suspect]
     Active Substance: BENZYL ALCOHOL\ETANERCEPT
     Dosage: UNK
     Route: 058
  202. ENBREL [Suspect]
     Active Substance: BENZYL ALCOHOL\ETANERCEPT
     Route: 058
  203. ENBREL [Suspect]
     Active Substance: BENZYL ALCOHOL\ETANERCEPT
     Dosage: UNK
     Route: 058
  204. ENBREL [Suspect]
     Active Substance: BENZYL ALCOHOL\ETANERCEPT
     Route: 065
  205. ENBREL [Suspect]
     Active Substance: BENZYL ALCOHOL\ETANERCEPT
     Route: 058
  206. ENBREL [Suspect]
     Active Substance: BENZYL ALCOHOL\ETANERCEPT
     Route: 058
  207. ENBREL [Suspect]
     Active Substance: BENZYL ALCOHOL\ETANERCEPT
     Route: 058
  208. ENBREL [Suspect]
     Active Substance: BENZYL ALCOHOL\ETANERCEPT
     Dosage: UNK
     Route: 065
  209. ENBREL [Suspect]
     Active Substance: BENZYL ALCOHOL\ETANERCEPT
     Route: 058
  210. ENBREL [Suspect]
     Active Substance: BENZYL ALCOHOL\ETANERCEPT
     Route: 058
  211. ENBREL [Suspect]
     Active Substance: BENZYL ALCOHOL\ETANERCEPT
     Dosage: UNK
     Route: 058
  212. ENBREL [Suspect]
     Active Substance: BENZYL ALCOHOL\ETANERCEPT
     Route: 058
  213. ENBREL [Suspect]
     Active Substance: BENZYL ALCOHOL\ETANERCEPT
     Route: 058
  214. ERELZI [Suspect]
     Active Substance: ETANERCEPT-SZZS
     Indication: Rheumatoid arthritis
     Route: 058
  215. ERELZI [Suspect]
     Active Substance: ETANERCEPT-SZZS
     Dosage: UNK
     Route: 065
  216. ERELZI [Suspect]
     Active Substance: ETANERCEPT-SZZS
     Route: 058
  217. ERELZI [Suspect]
     Active Substance: ETANERCEPT-SZZS
     Dosage: UNK
     Route: 058
  218. FLUMETHASONE PIVALATE [Suspect]
     Active Substance: FLUMETHASONE PIVALATE
     Indication: Rheumatoid arthritis
     Dosage: UNK
     Route: 003
  219. FLUMETHASONE PIVALATE [Suspect]
     Active Substance: FLUMETHASONE PIVALATE
     Dosage: UNK
     Route: 065
  220. FLUMETHASONE PIVALATE [Suspect]
     Active Substance: FLUMETHASONE PIVALATE
     Dosage: UNK
     Route: 058
  221. FLUMETHASONE PIVALATE [Suspect]
     Active Substance: FLUMETHASONE PIVALATE
     Dosage: UNK
     Route: 065
  222. FLUMETHASONE PIVALATE [Suspect]
     Active Substance: FLUMETHASONE PIVALATE
     Dosage: UNK
     Route: 058
  223. FOLIC ACID [Suspect]
     Active Substance: FOLIC ACID
     Indication: Rheumatoid arthritis
     Route: 065
  224. FOLIC ACID [Suspect]
     Active Substance: FOLIC ACID
     Route: 065
  225. FOLIC ACID [Suspect]
     Active Substance: FOLIC ACID
     Route: 048
  226. FOLIC ACID [Suspect]
     Active Substance: FOLIC ACID
     Route: 065
  227. FOLIC ACID [Suspect]
     Active Substance: FOLIC ACID
     Route: 048
  228. FOLIC ACID [Suspect]
     Active Substance: FOLIC ACID
     Route: 065
  229. FOLIC ACID [Suspect]
     Active Substance: FOLIC ACID
     Route: 048
  230. FOLIC ACID [Suspect]
     Active Substance: FOLIC ACID
     Route: 065
  231. FOLIC ACID [Suspect]
     Active Substance: FOLIC ACID
     Route: 048
  232. FOLIC ACID [Suspect]
     Active Substance: FOLIC ACID
     Route: 048
  233. FOLIC ACID [Suspect]
     Active Substance: FOLIC ACID
     Route: 065
  234. FOLIC ACID [Suspect]
     Active Substance: FOLIC ACID
     Route: 065
  235. FOLIC ACID [Suspect]
     Active Substance: FOLIC ACID
     Route: 065
  236. FOLIC ACID [Suspect]
     Active Substance: FOLIC ACID
     Route: 058
  237. FOLIC ACID [Suspect]
     Active Substance: FOLIC ACID
     Route: 048
  238. FOLIC ACID [Suspect]
     Active Substance: FOLIC ACID
     Dosage: UNK
     Route: 065
  239. FOLIC ACID [Suspect]
     Active Substance: FOLIC ACID
     Route: 065
  240. FOLIC ACID [Suspect]
     Active Substance: FOLIC ACID
     Route: 065
  241. FOLIC ACID [Suspect]
     Active Substance: FOLIC ACID
     Route: 065
  242. FOLIC ACID [Suspect]
     Active Substance: FOLIC ACID
     Route: 016
  243. FOLIC ACID [Suspect]
     Active Substance: FOLIC ACID
     Dosage: UNK
     Route: 065
  244. FOLIC ACID [Suspect]
     Active Substance: FOLIC ACID
     Route: 048
  245. FOLIC ACID [Suspect]
     Active Substance: FOLIC ACID
     Route: 048
  246. FOLIC ACID [Suspect]
     Active Substance: FOLIC ACID
     Route: 048
  247. FOLIC ACID [Suspect]
     Active Substance: FOLIC ACID
     Route: 048
  248. FOLIC ACID [Suspect]
     Active Substance: FOLIC ACID
     Route: 065
  249. FOLIC ACID [Suspect]
     Active Substance: FOLIC ACID
     Route: 048
  250. FOLIC ACID [Suspect]
     Active Substance: FOLIC ACID
     Route: 065
  251. FOLIC ACID [Suspect]
     Active Substance: FOLIC ACID
     Route: 065
  252. FOLIC ACID [Suspect]
     Active Substance: FOLIC ACID
     Route: 065
  253. FOLIC ACID [Suspect]
     Active Substance: FOLIC ACID
     Route: 065
  254. FOLIC ACID [Suspect]
     Active Substance: FOLIC ACID
     Dosage: UNK
     Route: 065
  255. FOLIC ACID [Suspect]
     Active Substance: FOLIC ACID
     Route: 065
  256. FOSAMAX [Suspect]
     Active Substance: ALENDRONATE SODIUM
     Indication: Rheumatoid arthritis
     Route: 058
  257. FOSAMAX [Suspect]
     Active Substance: ALENDRONATE SODIUM
     Dosage: UNK
     Route: 065
  258. FOSAMAX [Suspect]
     Active Substance: ALENDRONATE SODIUM
     Dosage: UNK
     Route: 048
  259. FOSAMAX [Suspect]
     Active Substance: ALENDRONATE SODIUM
     Dosage: UNK
     Route: 048
  260. HUMIRA [Suspect]
     Active Substance: ADALIMUMAB
     Indication: Rheumatoid arthritis
     Dosage: UNK
     Route: 065
  261. HUMIRA [Suspect]
     Active Substance: ADALIMUMAB
     Indication: Psoriatic arthropathy
     Dosage: UNK
     Route: 057
  262. HUMIRA [Suspect]
     Active Substance: ADALIMUMAB
     Route: 058
  263. HUMIRA [Suspect]
     Active Substance: ADALIMUMAB
     Dosage: UNK
     Route: 058
  264. HUMIRA [Suspect]
     Active Substance: ADALIMUMAB
     Route: 058
  265. HUMIRA [Suspect]
     Active Substance: ADALIMUMAB
     Dosage: UNK
     Route: 058
  266. HUMIRA [Suspect]
     Active Substance: ADALIMUMAB
     Route: 058
  267. HUMIRA [Suspect]
     Active Substance: ADALIMUMAB
     Route: 058
  268. HUMIRA [Suspect]
     Active Substance: ADALIMUMAB
     Route: 058
  269. HUMIRA [Suspect]
     Active Substance: ADALIMUMAB
     Route: 065
  270. HUMIRA [Suspect]
     Active Substance: ADALIMUMAB
     Route: 058
  271. HYDROCORTISONE [Suspect]
     Active Substance: HYDROCORTISONE
     Indication: Rheumatoid arthritis
     Dosage: UNK
     Route: 065
  272. HYDROCORTISONE [Suspect]
     Active Substance: HYDROCORTISONE
     Dosage: UNK
     Route: 048
  273. HYDROCORTISONE [Suspect]
     Active Substance: HYDROCORTISONE
     Route: 065
  274. HYDROCORTISONE [Suspect]
     Active Substance: HYDROCORTISONE
     Dosage: UNK
     Route: 003
  275. HYDROCORTISONE [Suspect]
     Active Substance: HYDROCORTISONE
     Dosage: UNK
     Route: 058
  276. HYDROCORTISONE [Suspect]
     Active Substance: HYDROCORTISONE
     Dosage: UNK
     Route: 058
  277. HYDROCORTISONE [Suspect]
     Active Substance: HYDROCORTISONE
     Dosage: UNK
     Route: 048
  278. HYDROCORTISONE [Suspect]
     Active Substance: HYDROCORTISONE
     Route: 061
  279. HYDROCORTISONE ACETATE [Suspect]
     Active Substance: HYDROCORTISONE ACETATE
     Indication: Rheumatoid arthritis
     Route: 065
  280. HYDROCORTISONE ACETATE [Suspect]
     Active Substance: HYDROCORTISONE ACETATE
     Dosage: UNK
     Route: 050
  281. HYDROCORTISONE ACETATE [Suspect]
     Active Substance: HYDROCORTISONE ACETATE
     Dosage: UNK
     Route: 058
  282. HYDROCORTISONE ACETATE [Suspect]
     Active Substance: HYDROCORTISONE ACETATE
     Dosage: UNK
     Route: 065
  283. HYDROCORTISONE ACETATE [Suspect]
     Active Substance: HYDROCORTISONE ACETATE
     Dosage: UNK
     Route: 003
  284. HYDROCORTISONE ACETATE [Suspect]
     Active Substance: HYDROCORTISONE ACETATE
     Dosage: UNK
     Route: 048
  285. HYDROCORTISONE ACETATE [Suspect]
     Active Substance: HYDROCORTISONE ACETATE
     Dosage: UNK
     Route: 003
  286. HYDROCORTISONE ACETATE [Suspect]
     Active Substance: HYDROCORTISONE ACETATE
     Dosage: UNK
     Route: 048
  287. HYDROCORTISONE ACETATE [Suspect]
     Active Substance: HYDROCORTISONE ACETATE
     Dosage: UNK
     Route: 058
  288. HYDROCORTISONE ACETATE [Suspect]
     Active Substance: HYDROCORTISONE ACETATE
     Dosage: UNK
     Route: 065
  289. HYDROCORTISONE ACETATE [Suspect]
     Active Substance: HYDROCORTISONE ACETATE
     Dosage: UNK
     Route: 065
  290. HYDROCORTISONE ACETATE [Suspect]
     Active Substance: HYDROCORTISONE ACETATE
     Dosage: UNK
     Route: 065
  291. HYDROCORTISONE ACETATE [Suspect]
     Active Substance: HYDROCORTISONE ACETATE
     Dosage: UNK
     Route: 058
  292. HYDROCORTISONE ACETATE [Suspect]
     Active Substance: HYDROCORTISONE ACETATE
     Dosage: UNK
     Route: 061
  293. HYDROCORTISONE ACETATE [Suspect]
     Active Substance: HYDROCORTISONE ACETATE
     Dosage: UNK
     Route: 048
  294. HYDROCORTISONE ACETATE [Suspect]
     Active Substance: HYDROCORTISONE ACETATE
     Dosage: UNK
     Route: 058
  295. HYDROCORTISONE ACETATE [Suspect]
     Active Substance: HYDROCORTISONE ACETATE
     Route: 065
  296. HYDROCORTISONE ACETATE [Suspect]
     Active Substance: HYDROCORTISONE ACETATE
     Dosage: UNK
     Route: 061
  297. HYDROCORTISONE ACETATE [Suspect]
     Active Substance: HYDROCORTISONE ACETATE
     Route: 065
  298. HYDROCORTISONE ACETATE [Suspect]
     Active Substance: HYDROCORTISONE ACETATE
     Route: 065
  299. HYDROCORTISONE ACETATE [Suspect]
     Active Substance: HYDROCORTISONE ACETATE
     Dosage: UNK
     Route: 058
  300. HYDROCORTISONE BUTYRATE [Suspect]
     Active Substance: HYDROCORTISONE BUTYRATE
     Indication: Rheumatoid arthritis
     Dosage: UNK
     Route: 058
  301. HYDROCORTISONE BUTYRATE [Suspect]
     Active Substance: HYDROCORTISONE BUTYRATE
     Dosage: UNK
     Route: 065
  302. HYDROCORTISONE BUTYRATE [Suspect]
     Active Substance: HYDROCORTISONE BUTYRATE
     Dosage: UNK
     Route: 050
  303. HYDROCORTISONE BUTYRATE [Suspect]
     Active Substance: HYDROCORTISONE BUTYRATE
     Dosage: UNK
     Route: 065
  304. HYDROCORTISONE BUTYRATE [Suspect]
     Active Substance: HYDROCORTISONE BUTYRATE
     Dosage: UNK
     Route: 048
  305. HYDROXYCHLOROQUINE [Suspect]
     Active Substance: HYDROXYCHLOROQUINE
     Indication: Rheumatoid arthritis
     Route: 065
  306. HYDROXYCHLOROQUINE [Suspect]
     Active Substance: HYDROXYCHLOROQUINE
     Route: 065
  307. HYDROXYCHLOROQUINE [Suspect]
     Active Substance: HYDROXYCHLOROQUINE
     Dosage: UNK
     Route: 005
  308. HYDROXYCHLOROQUINE [Suspect]
     Active Substance: HYDROXYCHLOROQUINE
     Dosage: UNK
     Route: 065
  309. HYDROXYCHLOROQUINE [Suspect]
     Active Substance: HYDROXYCHLOROQUINE
     Dosage: UNK
     Route: 048
  310. HYDROXYCHLOROQUINE [Suspect]
     Active Substance: HYDROXYCHLOROQUINE
     Route: 065
  311. HYDROXYCHLOROQUINE [Suspect]
     Active Substance: HYDROXYCHLOROQUINE
     Dosage: UNK
     Route: 048
  312. HYDROXYCHLOROQUINE [Suspect]
     Active Substance: HYDROXYCHLOROQUINE
     Route: 065
  313. HYDROXYCHLOROQUINE [Suspect]
     Active Substance: HYDROXYCHLOROQUINE
     Route: 048
  314. HYDROXYCHLOROQUINE [Suspect]
     Active Substance: HYDROXYCHLOROQUINE
     Route: 065
  315. HYDROXYCHLOROQUINE [Suspect]
     Active Substance: HYDROXYCHLOROQUINE
     Route: 065
  316. HYDROXYCHLOROQUINE [Suspect]
     Active Substance: HYDROXYCHLOROQUINE
     Route: 048
  317. HYDROXYCHLOROQUINE [Suspect]
     Active Substance: HYDROXYCHLOROQUINE
     Dosage: UNK
     Route: 058
  318. HYDROXYCHLOROQUINE [Suspect]
     Active Substance: HYDROXYCHLOROQUINE
     Route: 048
  319. HYDROXYCHLOROQUINE [Suspect]
     Active Substance: HYDROXYCHLOROQUINE
     Route: 048
  320. HYDROXYCHLOROQUINE [Suspect]
     Active Substance: HYDROXYCHLOROQUINE
     Dosage: UNK
     Route: 065
  321. HYDROXYCHLOROQUINE SULFATE [Suspect]
     Active Substance: HYDROXYCHLOROQUINE SULFATE
     Indication: Systemic lupus erythematosus
     Dosage: UNK
     Route: 065
  322. HYDROXYCHLOROQUINE SULFATE [Suspect]
     Active Substance: HYDROXYCHLOROQUINE SULFATE
     Indication: Rheumatoid arthritis
     Dosage: UNK
     Route: 048
  323. HYDROXYCHLOROQUINE SULFATE [Suspect]
     Active Substance: HYDROXYCHLOROQUINE SULFATE
     Route: 048
  324. HYDROXYCHLOROQUINE SULFATE [Suspect]
     Active Substance: HYDROXYCHLOROQUINE SULFATE
     Dosage: UNK
     Route: 065
  325. HYDROXYCHLOROQUINE SULFATE [Suspect]
     Active Substance: HYDROXYCHLOROQUINE SULFATE
     Route: 048
  326. HYDROXYCHLOROQUINE SULFATE [Suspect]
     Active Substance: HYDROXYCHLOROQUINE SULFATE
     Route: 048
  327. HYDROXYCHLOROQUINE SULFATE [Suspect]
     Active Substance: HYDROXYCHLOROQUINE SULFATE
     Route: 048
  328. HYDROXYCHLOROQUINE SULFATE [Suspect]
     Active Substance: HYDROXYCHLOROQUINE SULFATE
     Route: 065
  329. HYDROXYCHLOROQUINE SULFATE [Suspect]
     Active Substance: HYDROXYCHLOROQUINE SULFATE
     Route: 058
  330. HYDROXYCHLOROQUINE SULFATE [Suspect]
     Active Substance: HYDROXYCHLOROQUINE SULFATE
     Route: 065
  331. HYDROXYCHLOROQUINE SULFATE [Suspect]
     Active Substance: HYDROXYCHLOROQUINE SULFATE
     Route: 065
  332. HYDROXYCHLOROQUINE SULFATE [Suspect]
     Active Substance: HYDROXYCHLOROQUINE SULFATE
     Route: 066
  333. HYDROXYCHLOROQUINE SULFATE [Suspect]
     Active Substance: HYDROXYCHLOROQUINE SULFATE
     Route: 048
  334. HYDROXYCHLOROQUINE SULFATE [Suspect]
     Active Substance: HYDROXYCHLOROQUINE SULFATE
     Route: 065
  335. HYDROXYCHLOROQUINE SULFATE [Suspect]
     Active Substance: HYDROXYCHLOROQUINE SULFATE
     Route: 058
  336. HYDROXYCHLOROQUINE SULFATE [Suspect]
     Active Substance: HYDROXYCHLOROQUINE SULFATE
     Route: 016
  337. HYDROXYCHLOROQUINE SULFATE [Suspect]
     Active Substance: HYDROXYCHLOROQUINE SULFATE
     Route: 058
  338. HYDROXYCHLOROQUINE SULFATE [Suspect]
     Active Substance: HYDROXYCHLOROQUINE SULFATE
     Route: 058
  339. HYDROXYCHLOROQUINE SULFATE [Suspect]
     Active Substance: HYDROXYCHLOROQUINE SULFATE
     Route: 048
  340. HYDROXYCHLOROQUINE SULFATE [Suspect]
     Active Substance: HYDROXYCHLOROQUINE SULFATE
     Route: 065
  341. HYDROXYCHLOROQUINE SULFATE [Suspect]
     Active Substance: HYDROXYCHLOROQUINE SULFATE
     Route: 058
  342. HYDROXYCHLOROQUINE SULFATE [Suspect]
     Active Substance: HYDROXYCHLOROQUINE SULFATE
     Route: 048
  343. HYDROXYCHLOROQUINE SULFATE [Suspect]
     Active Substance: HYDROXYCHLOROQUINE SULFATE
     Route: 065
  344. HYDROXYCHLOROQUINE SULFATE [Suspect]
     Active Substance: HYDROXYCHLOROQUINE SULFATE
     Dosage: UNK
     Route: 065
  345. HYDROXYCHLOROQUINE SULFATE [Suspect]
     Active Substance: HYDROXYCHLOROQUINE SULFATE
     Route: 048
  346. HYDROXYCHLOROQUINE SULFATE [Suspect]
     Active Substance: HYDROXYCHLOROQUINE SULFATE
     Route: 048
  347. HYDROXYCHLOROQUINE SULFATE [Suspect]
     Active Substance: HYDROXYCHLOROQUINE SULFATE
     Dosage: UNK
     Route: 048
  348. HYDROXYCHLOROQUINE SULFATE [Suspect]
     Active Substance: HYDROXYCHLOROQUINE SULFATE
     Route: 048
  349. INFLIXIMAB [Suspect]
     Active Substance: INFLIXIMAB
     Indication: Rheumatoid arthritis
     Dosage: UNK
     Route: 042
  350. INFLIXIMAB [Suspect]
     Active Substance: INFLIXIMAB
     Indication: Psoriatic arthropathy
     Route: 042
  351. INFLIXIMAB [Suspect]
     Active Substance: INFLIXIMAB
     Dosage: UNK
     Route: 065
  352. INFLIXIMAB [Suspect]
     Active Substance: INFLIXIMAB
     Dosage: UNK
     Route: 042
  353. INFLIXIMAB [Suspect]
     Active Substance: INFLIXIMAB
     Route: 065
  354. ORENCIA [Suspect]
     Active Substance: ABATACEPT
     Indication: Rheumatoid arthritis
     Route: 041
  355. ORENCIA [Suspect]
     Active Substance: ABATACEPT
     Indication: Psoriatic arthropathy
     Route: 058
  356. ORENCIA [Suspect]
     Active Substance: ABATACEPT
     Route: 058
  357. ORENCIA [Suspect]
     Active Substance: ABATACEPT
     Route: 058
  358. ORENCIA [Suspect]
     Active Substance: ABATACEPT
     Dosage: UNK
     Route: 041
  359. ORENCIA [Suspect]
     Active Substance: ABATACEPT
     Route: 042
  360. ORENCIA [Suspect]
     Active Substance: ABATACEPT
     Route: 058
  361. ORENCIA [Suspect]
     Active Substance: ABATACEPT
     Dosage: UNK
     Route: 058
  362. ORENCIA [Suspect]
     Active Substance: ABATACEPT
     Dosage: UNK
     Route: 042
  363. ORENCIA [Suspect]
     Active Substance: ABATACEPT
     Dosage: UNK
     Route: 058
  364. OTEZLA [Suspect]
     Active Substance: APREMILAST
     Indication: Product used for unknown indication
     Route: 065
  365. OTEZLA [Suspect]
     Active Substance: APREMILAST
     Route: 048
  366. OTEZLA [Suspect]
     Active Substance: APREMILAST
     Route: 048
  367. OXYCODONE [Suspect]
     Active Substance: OXYCODONE\OXYCODONE HYDROCHLORIDE
     Indication: Product used for unknown indication
     Dosage: UNK
     Route: 065
  368. OXYCODONE [Suspect]
     Active Substance: OXYCODONE\OXYCODONE HYDROCHLORIDE
     Dosage: UNK
     Route: 042
  369. OXYCODONE [Suspect]
     Active Substance: OXYCODONE\OXYCODONE HYDROCHLORIDE
     Dosage: UNK
     Route: 065
  370. OXYCODONE [Suspect]
     Active Substance: OXYCODONE\OXYCODONE HYDROCHLORIDE
     Dosage: UNK
     Route: 065
  371. PERIOGARD [Suspect]
     Active Substance: CHLORHEXIDINE GLUCONATE
     Indication: Product used for unknown indication
     Dosage: UNK
     Route: 065
  372. PERIOGARD [Suspect]
     Active Substance: CHLORHEXIDINE GLUCONATE
     Dosage: UNK
     Route: 016
  373. PERIOGARD [Suspect]
     Active Substance: CHLORHEXIDINE GLUCONATE
     Dosage: UNK
     Route: 048
  374. PERIOGARD [Suspect]
     Active Substance: CHLORHEXIDINE GLUCONATE
     Dosage: UNK
     Route: 065
  375. PHTHALYLSULFATHIAZOLE [Suspect]
     Active Substance: PHTHALYLSULFATHIAZOLE
     Indication: Rheumatoid arthritis
     Route: 048
  376. PHTHALYLSULFATHIAZOLE [Suspect]
     Active Substance: PHTHALYLSULFATHIAZOLE
     Dosage: UNK
     Route: 042
  377. PHTHALYLSULFATHIAZOLE [Suspect]
     Active Substance: PHTHALYLSULFATHIAZOLE
     Route: 048
  378. PHTHALYLSULFATHIAZOLE [Suspect]
     Active Substance: PHTHALYLSULFATHIAZOLE
     Dosage: UNK
     Route: 016
  379. PHTHALYLSULFATHIAZOLE [Suspect]
     Active Substance: PHTHALYLSULFATHIAZOLE
     Route: 065
  380. PHTHALYLSULFATHIAZOLE [Suspect]
     Active Substance: PHTHALYLSULFATHIAZOLE
     Route: 065
  381. PHTHALYLSULFATHIAZOLE [Suspect]
     Active Substance: PHTHALYLSULFATHIAZOLE
     Dosage: UNK
     Route: 042
  382. PHTHALYLSULFATHIAZOLE [Suspect]
     Active Substance: PHTHALYLSULFATHIAZOLE
     Route: 048
  383. PHTHALYLSULFATHIAZOLE [Suspect]
     Active Substance: PHTHALYLSULFATHIAZOLE
     Dosage: UNK
     Route: 065
  384. PHTHALYLSULFATHIAZOLE [Suspect]
     Active Substance: PHTHALYLSULFATHIAZOLE
     Route: 048
  385. PHTHALYLSULFATHIAZOLE [Suspect]
     Active Substance: PHTHALYLSULFATHIAZOLE
     Route: 048
  386. PHTHALYLSULFATHIAZOLE [Suspect]
     Active Substance: PHTHALYLSULFATHIAZOLE
     Dosage: UNK
     Route: 048
  387. PREDNISONE [Suspect]
     Active Substance: PREDNISONE
     Indication: Systemic lupus erythematosus
     Dosage: UNK
     Route: 065
  388. PREDNISONE [Suspect]
     Active Substance: PREDNISONE
     Indication: Synovitis
     Route: 048
  389. PREDNISONE [Suspect]
     Active Substance: PREDNISONE
     Indication: Rheumatoid arthritis
     Dosage: UNK
     Route: 065
  390. PREDNISONE [Suspect]
     Active Substance: PREDNISONE
     Indication: Psoriatic arthropathy
     Route: 065
  391. PREDNISONE [Suspect]
     Active Substance: PREDNISONE
     Indication: Pemphigus
     Route: 065
  392. PREDNISONE [Suspect]
     Active Substance: PREDNISONE
     Indication: Condition aggravated
     Dosage: UNK
     Route: 048
  393. PREDNISONE [Suspect]
     Active Substance: PREDNISONE
     Dosage: UNK
     Route: 042
  394. PREDNISONE [Suspect]
     Active Substance: PREDNISONE
     Route: 048
  395. PREDNISONE [Suspect]
     Active Substance: PREDNISONE
     Route: 048
  396. PREDNISONE [Suspect]
     Active Substance: PREDNISONE
     Route: 065
  397. PREDNISONE [Suspect]
     Active Substance: PREDNISONE
     Route: 048
  398. PREDNISONE [Suspect]
     Active Substance: PREDNISONE
     Route: 048
  399. CETIRIZINE HYDROCHLORIDE [Suspect]
     Active Substance: CETIRIZINE HYDROCHLORIDE
     Indication: Urticaria
     Route: 005
  400. CETIRIZINE HYDROCHLORIDE [Suspect]
     Active Substance: CETIRIZINE HYDROCHLORIDE
     Indication: Rheumatoid arthritis
     Route: 065
  401. CETIRIZINE HYDROCHLORIDE [Suspect]
     Active Substance: CETIRIZINE HYDROCHLORIDE
     Route: 065
  402. CETIRIZINE HYDROCHLORIDE [Suspect]
     Active Substance: CETIRIZINE HYDROCHLORIDE
     Route: 048
  403. CETIRIZINE HYDROCHLORIDE [Suspect]
     Active Substance: CETIRIZINE HYDROCHLORIDE
     Dosage: UNK
     Route: 065
  404. CETIRIZINE HYDROCHLORIDE [Suspect]
     Active Substance: CETIRIZINE HYDROCHLORIDE
     Dosage: UNK
     Route: 016
  405. REMICADE [Suspect]
     Active Substance: INFLIXIMAB
     Indication: Rheumatoid arthritis
     Dosage: UNK, POWDER FOR SOLUTION
     Route: 042
  406. REMICADE [Suspect]
     Active Substance: INFLIXIMAB
     Dosage: UNK, POWDER FOR SOLUTION
     Route: 065
  407. REMICADE [Suspect]
     Active Substance: INFLIXIMAB
     Dosage: POWDER FOR SOLUTION
     Route: 042
  408. STELARA [Suspect]
     Active Substance: USTEKINUMAB
     Indication: Rheumatoid arthritis
     Route: 042
  409. STELARA [Suspect]
     Active Substance: USTEKINUMAB
     Dosage: UNK
     Route: 058
  410. STELARA [Suspect]
     Active Substance: USTEKINUMAB
     Dosage: UNK
     Route: 042
  411. STELARA [Suspect]
     Active Substance: USTEKINUMAB
     Dosage: UNK
     Route: 058
  412. STELARA [Suspect]
     Active Substance: USTEKINUMAB
     Route: 058
  413. SULFASALAZINE [Suspect]
     Active Substance: SULFASALAZINE
     Indication: Rheumatoid arthritis
     Route: 048
  414. SULFASALAZINE [Suspect]
     Active Substance: SULFASALAZINE
     Route: 048
  415. SULFASALAZINE [Suspect]
     Active Substance: SULFASALAZINE
     Route: 048
  416. SULFASALAZINE [Suspect]
     Active Substance: SULFASALAZINE
     Dosage: UNK
     Route: 065
  417. SULFASALAZINE [Suspect]
     Active Substance: SULFASALAZINE
     Route: 048
  418. SULFASALAZINE [Suspect]
     Active Substance: SULFASALAZINE
     Route: 048
  419. SULFASALAZINE [Suspect]
     Active Substance: SULFASALAZINE
     Route: 058
  420. SULFASALAZINE [Suspect]
     Active Substance: SULFASALAZINE
     Route: 048
  421. SULFASALAZINE [Suspect]
     Active Substance: SULFASALAZINE
     Route: 048
  422. SULFASALAZINE [Suspect]
     Active Substance: SULFASALAZINE
     Route: 058
  423. SULFASALAZINE [Suspect]
     Active Substance: SULFASALAZINE
     Dosage: UNK
     Route: 048
  424. SULFASALAZINE [Suspect]
     Active Substance: SULFASALAZINE
     Route: 048
  425. SULFASALAZINE [Suspect]
     Active Substance: SULFASALAZINE
     Route: 048
  426. SULFASALAZINE [Suspect]
     Active Substance: SULFASALAZINE
     Route: 065
  427. SULFASALAZINE [Suspect]
     Active Substance: SULFASALAZINE
     Route: 065
  428. SULFASALAZINE [Suspect]
     Active Substance: SULFASALAZINE
     Route: 065
  429. SULFASALAZINE [Suspect]
     Active Substance: SULFASALAZINE
     Route: 048
  430. SULFASALAZINE [Suspect]
     Active Substance: SULFASALAZINE
     Route: 065
  431. SULFASALAZINE [Suspect]
     Active Substance: SULFASALAZINE
     Route: 048
  432. SULFASALAZINE [Suspect]
     Active Substance: SULFASALAZINE
     Route: 048
  433. SULFASALAZINE [Suspect]
     Active Substance: SULFASALAZINE
     Route: 048
  434. SULFASALAZINE [Suspect]
     Active Substance: SULFASALAZINE
     Route: 048
  435. SULFASALAZINE [Suspect]
     Active Substance: SULFASALAZINE
     Route: 048
  436. SULFASALAZINE [Suspect]
     Active Substance: SULFASALAZINE
     Route: 048
  437. SULFASALAZINE [Suspect]
     Active Substance: SULFASALAZINE
     Route: 065
  438. SULFASALAZINE [Suspect]
     Active Substance: SULFASALAZINE
     Dosage: UNK
     Route: 065
  439. SULFASALAZINE [Suspect]
     Active Substance: SULFASALAZINE
     Route: 065
  440. SULFASALAZINE [Suspect]
     Active Substance: SULFASALAZINE
     Route: 048
  441. SULFASALAZINE [Suspect]
     Active Substance: SULFASALAZINE
     Dosage: UNK
     Route: 065
  442. SULFASALAZINE [Suspect]
     Active Substance: SULFASALAZINE
     Route: 048
  443. SULFASALAZINE [Suspect]
     Active Substance: SULFASALAZINE
     Route: 048
  444. SULFASALAZINE [Suspect]
     Active Substance: SULFASALAZINE
     Route: 065
  445. SULFASALAZINE [Suspect]
     Active Substance: SULFASALAZINE
     Route: 065
  446. SULFASALAZINE [Suspect]
     Active Substance: SULFASALAZINE
     Route: 048
  447. SULFASALAZINE [Suspect]
     Active Substance: SULFASALAZINE
     Route: 048
  448. SULFASALAZINE [Suspect]
     Active Substance: SULFASALAZINE
     Route: 048
  449. TRIAMCINOLONE ACETONIDE [Suspect]
     Active Substance: TRIAMCINOLONE ACETONIDE
     Indication: Rheumatoid arthritis
     Dosage: SUSPENSION, UNK
     Route: 014
  450. VITAMIN D3 [Suspect]
     Active Substance: CHOLECALCIFEROL
     Indication: Rheumatoid arthritis
     Dosage: UNK
     Route: 065
  451. VITAMIN D3 [Suspect]
     Active Substance: CHOLECALCIFEROL
     Dosage: UNK
     Route: 065
  452. PREDNISONE [Suspect]
     Active Substance: PREDNISONE
     Indication: Rheumatoid arthritis
     Dosage: UNK
     Route: 048
  453. PREDNISONE [Suspect]
     Active Substance: PREDNISONE
     Dosage: UNK
     Route: 048
  454. XELJANZ [Suspect]
     Active Substance: TOFACITINIB CITRATE
     Indication: Rheumatoid arthritis
     Route: 048
  455. XELJANZ [Suspect]
     Active Substance: TOFACITINIB CITRATE
     Route: 065
  456. XELJANZ [Suspect]
     Active Substance: TOFACITINIB CITRATE
     Route: 065
  457. XELJANZ [Suspect]
     Active Substance: TOFACITINIB CITRATE
     Route: 065
  458. XELJANZ [Suspect]
     Active Substance: TOFACITINIB CITRATE
     Route: 065
  459. XELJANZ [Suspect]
     Active Substance: TOFACITINIB CITRATE
     Dosage: UNK
     Route: 065
  460. XELJANZ [Suspect]
     Active Substance: TOFACITINIB CITRATE
     Route: 065
  461. XELJANZ [Suspect]
     Active Substance: TOFACITINIB CITRATE
     Route: 065
  462. XELJANZ [Suspect]
     Active Substance: TOFACITINIB CITRATE
     Route: 048
  463. XELJANZ [Suspect]
     Active Substance: TOFACITINIB CITRATE
     Dosage: UNK
     Route: 048
  464. XELJANZ [Suspect]
     Active Substance: TOFACITINIB CITRATE
     Route: 065
  465. XELJANZ [Suspect]
     Active Substance: TOFACITINIB CITRATE
     Route: 065
  466. XELJANZ [Suspect]
     Active Substance: TOFACITINIB CITRATE
     Dosage: UNK
     Route: 065
  467. LEFLUNOMIDE [Suspect]
     Active Substance: LEFLUNOMIDE
     Indication: Rheumatoid arthritis
     Dosage: UNK
     Route: 048
  468. LEFLUNOMIDE [Suspect]
     Active Substance: LEFLUNOMIDE
     Route: 048
  469. LEFLUNOMIDE [Suspect]
     Active Substance: LEFLUNOMIDE
     Route: 048
  470. LEFLUNOMIDE [Suspect]
     Active Substance: LEFLUNOMIDE
     Dosage: UNK
     Route: 065
  471. METHOTREXATE [Suspect]
     Active Substance: METHOTREXATE
     Indication: Rheumatoid arthritis
     Route: 013
  472. METHOTREXATE [Suspect]
     Active Substance: METHOTREXATE
     Route: 048
  473. METHOTREXATE [Suspect]
     Active Substance: METHOTREXATE
     Route: 048
  474. METHOTREXATE [Suspect]
     Active Substance: METHOTREXATE
     Route: 058
  475. METHOTREXATE [Suspect]
     Active Substance: METHOTREXATE
     Route: 058
  476. METHOTREXATE [Suspect]
     Active Substance: METHOTREXATE
     Route: 058
  477. METHOTREXATE [Suspect]
     Active Substance: METHOTREXATE
     Dosage: UNK
     Route: 065
  478. METHOTREXATE [Suspect]
     Active Substance: METHOTREXATE
     Dosage: UNK
     Route: 042
  479. METHOTREXATE [Suspect]
     Active Substance: METHOTREXATE
     Dosage: UNK
     Route: 065
  480. METHOTREXATE [Suspect]
     Active Substance: METHOTREXATE
     Route: 058
  481. METHOTREXATE [Suspect]
     Active Substance: METHOTREXATE
     Dosage: UNK
     Route: 013
  482. METHOTREXATE [Suspect]
     Active Substance: METHOTREXATE
     Route: 065
  483. RITUXIMAB [Suspect]
     Active Substance: RITUXIMAB
     Indication: Rheumatoid arthritis
     Dosage: UNK
     Route: 042
  484. RITUXIMAB [Suspect]
     Active Substance: RITUXIMAB
     Dosage: UNK
     Route: 058
  485. RITUXIMAB [Suspect]
     Active Substance: RITUXIMAB
     Route: 065
  486. RITUXIMAB [Suspect]
     Active Substance: RITUXIMAB
     Dosage: UNK
     Route: 041
  487. RITUXIMAB [Suspect]
     Active Substance: RITUXIMAB
     Dosage: UNK
     Route: 058
  488. RITUXIMAB [Suspect]
     Active Substance: RITUXIMAB
     Dosage: UNK
     Route: 042
  489. RITUXIMAB [Suspect]
     Active Substance: RITUXIMAB
     Dosage: UNK
     Route: 065
  490. RITUXIMAB [Suspect]
     Active Substance: RITUXIMAB
     Dosage: UNK
     Route: 042
  491. SIMPONI [Suspect]
     Active Substance: GOLIMUMAB
     Indication: Rheumatoid arthritis
     Dosage: UNK
     Route: 042
  492. SIMPONI [Suspect]
     Active Substance: GOLIMUMAB
     Indication: Psoriatic arthropathy
     Dosage: UNK
     Route: 065
  493. SIMPONI [Suspect]
     Active Substance: GOLIMUMAB
     Dosage: UNK
     Route: 065
  494. SIMPONI [Suspect]
     Active Substance: GOLIMUMAB
     Dosage: UNK
     Route: 058
  495. SIMPONI [Suspect]
     Active Substance: GOLIMUMAB
     Route: 058
  496. SIMPONI [Suspect]
     Active Substance: GOLIMUMAB
     Dosage: UNK
     Route: 058
  497. SIMPONI [Suspect]
     Active Substance: GOLIMUMAB
     Dosage: UNK
     Route: 052
  498. SIMPONI [Suspect]
     Active Substance: GOLIMUMAB
     Dosage: UNK
     Route: 058

REACTIONS (19)
  - Alopecia [Fatal]
  - Impaired healing [Fatal]
  - Musculoskeletal stiffness [Fatal]
  - Hypersensitivity [Fatal]
  - Rash [Fatal]
  - Drug intolerance [Fatal]
  - Hepatic enzyme increased [Fatal]
  - Joint swelling [Fatal]
  - Pruritus [Fatal]
  - Blister [Fatal]
  - Rheumatoid arthritis [Fatal]
  - Sinusitis [Fatal]
  - Sleep disorder due to general medical condition, insomnia type [Fatal]
  - Stomatitis [Fatal]
  - Swelling [Fatal]
  - Synovitis [Fatal]
  - Systemic lupus erythematosus [Fatal]
  - Weight increased [Fatal]
  - Wound [Fatal]
